FAERS Safety Report 8036448-6 (Version None)
Quarter: 2012Q1

REPORT INFORMATION
  Report Type: 
  Country: None (occurrence: None)
  Receive Date: 20120111
  Receipt Date: 20120104
  Transmission Date: 20120608
  Serious: Yes (Other)
  Sender: FDA-Public Use
  Company Number: TR-PFIZER INC-2012003212

PATIENT
  Age: 18 Month
  Sex: Female

DRUGS (1)
  1. CARBOPLATIN [Suspect]
     Indication: INTRAOCULAR RETINOBLASTOMA
     Dosage: INFERONASAL INJ. SITE
     Route: 057

REACTIONS (1)
  - CELLULITIS [None]
